FAERS Safety Report 9530068 (Version 2)
Quarter: 2013Q4

REPORT INFORMATION
  Report Type: Other
  Country: DK (occurrence: FI)
  Receive Date: 20130917
  Receipt Date: 20131014
  Transmission Date: 20140711
  Serious: Yes (Other)
  Sender: FDA-Public Use
  Company Number: FI-FRI-1000048865

PATIENT
  Age: 42 Year
  Sex: Female

DRUGS (4)
  1. CITALOPRAM [Suspect]
  2. CARBAMAZEPINE [Suspect]
     Indication: COMPLEX PARTIAL SEIZURES
  3. OXCARBAZEPINE [Suspect]
     Indication: COMPLEX PARTIAL SEIZURES
  4. ALPRAZOLAM [Concomitant]
     Dosage: 2 MG

REACTIONS (8)
  - Drug level increased [Recovered/Resolved]
  - Drug level decreased [Recovered/Resolved]
  - Drug interaction [Recovered/Resolved]
  - Complex partial seizures [Recovered/Resolved]
  - Tremor [Recovered/Resolved]
  - Anxiety [Recovering/Resolving]
  - Convulsion [Recovered/Resolved]
  - Prescribed overdose [Recovered/Resolved]
